FAERS Safety Report 7643617-3 (Version None)
Quarter: 2011Q3

REPORT INFORMATION
  Report Type: 
  Country: None (occurrence: None)
  Receive Date: 20110729
  Receipt Date: 20110717
  Transmission Date: 20111222
  Serious: Yes (Other)
  Sender: FDA-Public Use
  Company Number: PHHY2011MX65289

PATIENT
  Sex: Female

DRUGS (2)
  1. DIOVAN [Suspect]
     Indication: HYPERTENSION
     Dosage: 2 DF, 160 MG PER DAY
  2. NORVASC [Concomitant]
     Indication: HYPERTENSION
     Dosage: 3 DF, PER DAY

REACTIONS (6)
  - SHOCK [None]
  - BLOOD GLUCOSE DECREASED [None]
  - WEIGHT DECREASED [None]
  - HYPERTENSION [None]
  - DECREASED APPETITE [None]
  - ANEURYSM [None]
